FAERS Safety Report 7334803-0 (Version None)
Quarter: 2011Q1

REPORT INFORMATION
  Report Type: 
  Country: None (occurrence: None)
  Receive Date: 20110307
  Receipt Date: 20110223
  Transmission Date: 20110831
  Serious: Yes (Other)
  Sender: FDA-Public Use
  Company Number: PHHY2011AU14679

PATIENT
  Sex: Female

DRUGS (1)
  1. ESTRADERM [Suspect]
     Route: 062

REACTIONS (2)
  - DRUG PRESCRIBING ERROR [None]
  - APHONIA [None]
